FAERS Safety Report 9502404 (Version 1)
Quarter: 2013Q3

REPORT INFORMATION
  Report Type: Spontaneous
  Country: DE (occurrence: DE)
  Receive Date: 20130906
  Receipt Date: 20130906
  Transmission Date: 20140515
  Serious: Yes (Other)
  Sender: FDA-Public Use
  Company Number: DE-AMGEN-NLDSP2013061863

PATIENT
  Age: 76 Year
  Sex: Male
  Weight: 99 kg

DRUGS (4)
  1. XGEVA [Suspect]
     Indication: PLASMACYTOMA
     Dosage: UNK
     Route: 065
     Dates: start: 2012, end: 2013
  2. REVLIMID [Suspect]
     Route: 065
  3. MARCUMAR [Concomitant]
     Indication: ATRIAL FIBRILLATION
     Dosage: UNK
  4. BISOPROLOL [Concomitant]
     Indication: ATRIAL FIBRILLATION
     Dosage: 2.5 UNK, QD

REACTIONS (1)
  - Osteonecrosis of jaw [Recovered/Resolved]
